FAERS Safety Report 17934430 (Version 1)
Quarter: 2020Q2

REPORT INFORMATION
  Report Type: Report from Study
  Country: BR (occurrence: BR)
  Receive Date: 20200624
  Receipt Date: 20200624
  Transmission Date: 20200714
  Serious: Yes (Other)
  Sender: FDA-Public Use
  Company Number: BR-UCBSA-2020016045

PATIENT
  Age: 67 Year
  Sex: Female
  Weight: 68 kg

DRUGS (6)
  1. DIPIRONA [Concomitant]
     Active Substance: METAMIZOLE
     Indication: PAIN
     Dosage: 1 DOSAGE FORM, AS NEEDED (PRN)
     Route: 048
  2. CALCIUM [Concomitant]
     Active Substance: CALCIUM
     Indication: RHEUMATOID ARTHRITIS
  3. PREDNISONA [Concomitant]
     Active Substance: PREDNISONE
     Indication: PAIN
     Dosage: 10 MILLIGRAM, ONCE DAILY (QD)
     Route: 048
  4. ALENDRONATE SODIUM. [Concomitant]
     Active Substance: ALENDRONATE SODIUM
     Indication: RHEUMATOID ARTHRITIS
  5. CERTOLIZUMAB PEGOL RA [Suspect]
     Active Substance: CERTOLIZUMAB PEGOL
     Indication: RHEUMATOID ARTHRITIS
     Dosage: 400 MILLIGRAM, EV 4 WEEKS
     Route: 058
     Dates: start: 20200317
  6. SULFASALAZINA [Concomitant]
     Active Substance: SULFASALAZINE
     Indication: RHEUMATOID ARTHRITIS

REACTIONS (6)
  - Pelvic fracture [Not Recovered/Not Resolved]
  - Wound haemorrhage [Recovered/Resolved]
  - Rheumatoid arthritis [Recovering/Resolving]
  - Fall [Not Recovered/Not Resolved]
  - Head injury [Recovered/Resolved]
  - Dizziness [Not Recovered/Not Resolved]

NARRATIVE: CASE EVENT DATE: 20200403
